FAERS Safety Report 23610082 (Version 1)
Quarter: 2024Q1

REPORT INFORMATION
  Report Type: Spontaneous
  Country: US (occurrence: US)
  Receive Date: 20240308
  Receipt Date: 20240308
  Transmission Date: 20240410
  Serious: No
  Sender: FDA-Public Use
  Company Number: US-Blueprint Medicines Corporation-2646

PATIENT
  Sex: Female

DRUGS (2)
  1. AYVAKIT [Suspect]
     Active Substance: AVAPRITINIB
     Indication: Advanced systemic mastocytosis
     Dosage: ONE 25 MG AND ONE 50 MG FOR TOTAL DOSE OF 75 MG
     Route: 048
     Dates: start: 20210714
  2. AYVAKIT [Suspect]
     Active Substance: AVAPRITINIB
     Dosage: ONE 25 MG AND ONE 50 MG FOR TOTAL DOSE OF 75 MG
     Route: 048
     Dates: start: 20210714

REACTIONS (1)
  - Influenza [Unknown]
